FAERS Safety Report 16482278 (Version 1)
Quarter: 2019Q2

REPORT INFORMATION
  Report Type: Spontaneous
  Country: ES (occurrence: ES)
  Receive Date: 20190627
  Receipt Date: 20190627
  Transmission Date: 20190711
  Serious: Yes (Hospitalization)
  Sender: FDA-Public Use
  Company Number: ES-TEVA-2019-ES-1069647

PATIENT
  Age: 8 Year
  Sex: Female

DRUGS (2)
  1. METOTREXATO (418A) [Suspect]
     Active Substance: METHOTREXATE
     Indication: ACUTE LYMPHOCYTIC LEUKAEMIA
     Dosage: 1.5G/M2 IN 36 HOURS
     Route: 042
     Dates: start: 20190104, end: 20190104
  2. VINCRISTINA (809A) [Suspect]
     Active Substance: VINCRISTINE SULFATE
     Dosage: VINCRISTINE: 1.5MG/M2, DAYS 1 AND 6
     Route: 042
     Dates: start: 20190104, end: 20190108

REACTIONS (1)
  - Hepatitis [Recovered/Resolved]

NARRATIVE: CASE EVENT DATE: 20190106
